FAERS Safety Report 16293776 (Version 5)
Quarter: 2019Q3

REPORT INFORMATION
  Report Type: Report from Study
  Country: US (occurrence: US)
  Receive Date: 20190509
  Receipt Date: 20190809
  Transmission Date: 20191004
  Serious: Yes (Other)
  Sender: FDA-Public Use
  Company Number: US-TESARO-2018-TSO02652-US

PATIENT
  Age: 79 Year
  Sex: Female

DRUGS (8)
  1. HYDROCORTISONE. [Concomitant]
     Active Substance: HYDROCORTISONE
     Indication: PRODUCT USED FOR UNKNOWN INDICATION
  2. MIRALAX [Concomitant]
     Active Substance: POLYETHYLENE GLYCOL 3350
     Indication: PRODUCT USED FOR UNKNOWN INDICATION
     Dosage: UNK
  3. NITRO                              /00003201/ [Concomitant]
     Active Substance: NITROGLYCERIN
     Indication: PRODUCT USED FOR UNKNOWN INDICATION
     Dosage: UNK, PRN
  4. ZEJULA [Suspect]
     Active Substance: NIRAPARIB
     Indication: OVARIAN CANCER
     Dosage: 200 MG, DAILY 4PM WITH FOOD
     Route: 048
     Dates: start: 20181218
  5. PREDNISOLONE. [Concomitant]
     Active Substance: PREDNISOLONE
     Indication: SCIATICA
     Dosage: UNK
  6. STOOL SOFTENER (DOCUSATE) [Concomitant]
     Active Substance: DOCUSATE
     Indication: PRODUCT USED FOR UNKNOWN INDICATION
     Dosage: UNK
  7. PRAVACHOL [Suspect]
     Active Substance: PRAVASTATIN SODIUM
     Indication: BLOOD CHOLESTEROL INCREASED
     Dosage: 20 MG, UNK
  8. PRAVACHOL [Suspect]
     Active Substance: PRAVASTATIN SODIUM
     Dosage: 40 MG, UNK

REACTIONS (22)
  - Haemorrhoids [Unknown]
  - Back pain [Not Recovered/Not Resolved]
  - Contusion [Not Recovered/Not Resolved]
  - Pulmonary oedema [Not Recovered/Not Resolved]
  - White blood cell count abnormal [Unknown]
  - Carbohydrate antigen 125 increased [Not Recovered/Not Resolved]
  - Nephrolithiasis [Not Recovered/Not Resolved]
  - Fatigue [Not Recovered/Not Resolved]
  - Dyspepsia [Not Recovered/Not Resolved]
  - Nausea [Unknown]
  - Rectal haemorrhage [Unknown]
  - Stomatitis [Recovered/Resolved]
  - Chest pain [Unknown]
  - Oral pain [Recovering/Resolving]
  - Blood cholesterol increased [Not Recovered/Not Resolved]
  - Gastrooesophageal reflux disease [Not Recovered/Not Resolved]
  - Blood thyroid stimulating hormone abnormal [Unknown]
  - Decreased appetite [Not Recovered/Not Resolved]
  - Cold sweat [Unknown]
  - Malaise [Unknown]
  - Gait disturbance [Not Recovered/Not Resolved]
  - Peripheral swelling [Not Recovered/Not Resolved]

NARRATIVE: CASE EVENT DATE: 201812
